FAERS Safety Report 11986699 (Version 1)
Quarter: 2016Q1

REPORT INFORMATION
  Report Type: Spontaneous
  Country: US (occurrence: US)
  Receive Date: 20160202
  Receipt Date: 20160202
  Transmission Date: 20160526
  Serious: Yes (Hospitalization, Other)
  Sender: FDA-Public Use
  Company Number: US-UCBSA-2015002892

PATIENT
  Age: 2 Year
  Sex: Male

DRUGS (13)
  1. ONFI [Suspect]
     Active Substance: CLOBAZAM
     Indication: GENERALISED TONIC-CLONIC SEIZURE
     Dosage: UNK (UNKNOWN DOSAGE FORM)
  2. ONFI [Suspect]
     Active Substance: CLOBAZAM
     Dosage: PILL FORM
  3. ZARONTIN [Concomitant]
     Active Substance: ETHOSUXIMIDE
     Dosage: DOSE UPED AGAIN (UNKNOWN AMOUNT)
  4. DEPAKENE [Concomitant]
     Active Substance: VALPROIC ACID
     Dosage: DOSE UPED AGAIN (UNKNOWN AMOUNT)
  5. ZARONTIN [Concomitant]
     Active Substance: ETHOSUXIMIDE
     Indication: PETIT MAL EPILEPSY
     Dosage: UNKNOWN
  6. KEPPRA [Suspect]
     Active Substance: LEVETIRACETAM
     Dosage: DOSE UPED (UNKNOWN AMOUNT)
  7. DEPAKENE [Concomitant]
     Active Substance: VALPROIC ACID
     Dosage: DOSE UPED (UNKNOWN AMOUNT)
  8. KEPPRA [Suspect]
     Active Substance: LEVETIRACETAM
     Indication: GENERALISED TONIC-CLONIC SEIZURE
     Dosage: UNKNOWN DOSE
  9. KEPPRA [Suspect]
     Active Substance: LEVETIRACETAM
     Dosage: DOSE UPED AGAIN (UNKNOWN AMOUNT)
  10. GUANFACINE. [Concomitant]
     Active Substance: GUANFACINE
     Indication: PRODUCT USED FOR UNKNOWN INDICATION
     Dosage: UNK
  11. ZARONTIN [Concomitant]
     Active Substance: ETHOSUXIMIDE
     Dosage: DOSE UPED (UNKNOWN AMOUNT)
  12. DEPAKENE [Concomitant]
     Active Substance: VALPROIC ACID
     Indication: PETIT MAL EPILEPSY
     Dosage: UNKNOWN
  13. ZONISAMIDE. [Concomitant]
     Active Substance: ZONISAMIDE
     Indication: PRODUCT USED FOR UNKNOWN INDICATION
     Dosage: UNK

REACTIONS (5)
  - Generalised tonic-clonic seizure [Unknown]
  - Aggression [Unknown]
  - Drug ineffective [Unknown]
  - Seizure [Unknown]
  - Amnesia [Unknown]
